FAERS Safety Report 25700359 (Version 1)
Quarter: 2025Q3

REPORT INFORMATION
  Report Type: Spontaneous
  Country: GB (occurrence: GB)
  Receive Date: 20250819
  Receipt Date: 20250819
  Transmission Date: 20251020
  Serious: Yes (Disabling, Other)
  Sender: B. BRAUN MEDICAL INC.
  Company Number: None

PATIENT
  Age: 53 Year
  Sex: Female
  Weight: 60 kg

DRUGS (4)
  1. LIDOCAINE [Suspect]
     Active Substance: LIDOCAINE
     Indication: Arthralgia
  2. LIDOCAINE\METHYLPREDNISOLONE [Suspect]
     Active Substance: LIDOCAINE\METHYLPREDNISOLONE
     Indication: Arthralgia
  3. ESTRADIOL [Concomitant]
     Active Substance: ESTRADIOL
     Indication: Hormone replacement therapy
  4. UTROGESTAN [Concomitant]
     Active Substance: PROGESTERONE
     Indication: Hormone replacement therapy

REACTIONS (10)
  - Hyperhidrosis [Not Recovered/Not Resolved]
  - Insomnia [Recovering/Resolving]
  - Arthralgia [Recovered/Resolved]
  - Suicidal ideation [Recovering/Resolving]
  - Osteoarthritis [Recovered/Resolved]
  - Decreased appetite [Unknown]
  - Anxiety [Recovering/Resolving]
  - Depression [Recovering/Resolving]
  - Nausea [Recovering/Resolving]
  - Malaise [Not Recovered/Not Resolved]

NARRATIVE: CASE EVENT DATE: 20250722
